FAERS Safety Report 6838631-1 (Version None)
Quarter: 2010Q3

REPORT INFORMATION
  Report Type: 
  Country: None (occurrence: None)
  Receive Date: 20100713
  Receipt Date: 20070618
  Transmission Date: 20110219
  Serious: No
  Sender: FDA-Public Use
  Company Number: US-PFIZER INC-2007050514

PATIENT
  Sex: Male
  Weight: 86.363 kg

DRUGS (8)
  1. CHANTIX [Suspect]
     Indication: SMOKING CESSATION THERAPY
     Dates: start: 20070601
  2. AVAPRO [Concomitant]
  3. DILTIAZEM [Concomitant]
  4. MOBIC [Concomitant]
  5. METHOTREXATE [Concomitant]
  6. BUSPAR [Concomitant]
  7. FAMOTIDINE [Concomitant]
  8. ULTRAM [Concomitant]

REACTIONS (2)
  - INSOMNIA [None]
  - NAUSEA [None]
